FAERS Safety Report 9518926 (Version 1)
Quarter: 2013Q3

REPORT INFORMATION
  Report Type: Spontaneous
  Country: US (occurrence: None)
  Receive Date: 20130910
  Receipt Date: 20130910
  Transmission Date: 20140515
  Serious: Yes (Life-Threatening)
  Sender: FDA-Public Use
  Company Number: None

PATIENT
  Age: 50 Year
  Sex: Female
  Weight: 78 kg

DRUGS (11)
  1. NEXIUM [Suspect]
     Route: 048
  2. AMITRIPTYLINE [Concomitant]
  3. DOCUSATE [Concomitant]
  4. ENOXAPARIN [Concomitant]
  5. METHYLPREDNISOLONE [Concomitant]
  6. METOPROLOL [Concomitant]
  7. SENNA [Concomitant]
  8. TAMSULOSIN [Concomitant]
  9. DIPHENHYDRAMINE [Concomitant]
  10. FENTANYL [Concomitant]
  11. HEMORRHOIDAL [Concomitant]

REACTIONS (3)
  - Anaphylactic reaction [None]
  - Pruritus [None]
  - Stridor [None]
